FAERS Safety Report 9524605 (Version 1)
Quarter: 2013Q3

REPORT INFORMATION
  Report Type: Spontaneous
  Country: GB (occurrence: None)
  Receive Date: 20130912
  Receipt Date: 20130912
  Transmission Date: 20140515
  Serious: Yes (Life-Threatening, Hospitalization, Disabling)
  Sender: FDA-Public Use
  Company Number: AUR-APL-2013-07472

PATIENT
  Age: 73 Year
  Sex: Male

DRUGS (17)
  1. CITALOPRAM [Suspect]
     Indication: DEPRESSION
     Route: 048
     Dates: start: 20130802, end: 20130820
  2. TRAMADOL [Suspect]
     Indication: PAIN
     Dosage: 400 MG (200 MG, 2 IN 1 D), ORAL
     Route: 048
     Dates: start: 20130715, end: 20130818
  3. AMITRIPTYLINE [Suspect]
     Indication: NEURALGIA
     Route: 048
     Dates: start: 201212, end: 20130820
  4. CYMBALTA (DULOXETINE HYDROCHLORIDE) [Suspect]
     Indication: NEURALGIA
     Route: 048
     Dates: start: 20130808, end: 20130821
  5. ADACAL-D3 (LEKOVIT CA) [Concomitant]
  6. ALENDRONATE (ALENDRONATE SODIUM) [Concomitant]
  7. BISOPROLOL (BISOPROLOL) [Concomitant]
  8. BUMETANIDE (BUMETANIDE) [Concomitant]
  9. DIGOXIN (DIGOXIN) [Concomitant]
  10. DIHYDROCODEINE (DIHYDROCODEINE) [Concomitant]
  11. GABAPENTIN (GABAPENTIN) [Concomitant]
  12. METFORMIN (METFORMIN) [Concomitant]
  13. OMEPRAZOLE (OMEPRAZOLE) [Concomitant]
  14. PARACETAMOL (PARACETAMOL) [Concomitant]
  15. PREDNISOLONE (PREDNISOLONE) [Concomitant]
  16. RAMIPRIL (RAMIPRIL) [Concomitant]
  17. WARFARIN (WARFARIN) [Concomitant]

REACTIONS (1)
  - Serotonin syndrome [None]
